FAERS Safety Report 12372795 (Version 2)
Quarter: 2016Q2

REPORT INFORMATION
  Report Type: Spontaneous
  Country: CN (occurrence: CN)
  Receive Date: 20160516
  Receipt Date: 20160518
  Transmission Date: 20160815
  Serious: Yes (Death)
  Sender: FDA-Public Use
  Company Number: CN-BAYER-2016-093830

PATIENT
  Age: 11 Month
  Sex: Male
  Weight: 7 kg

DRUGS (1)
  1. ULTRAVIST [Suspect]
     Active Substance: IOPROMIDE
     Indication: COMPUTERISED TOMOGRAM
     Dosage: 14 ML, ONCE
     Dates: start: 20160513, end: 20160513

REACTIONS (2)
  - Death [Fatal]
  - Discomfort [None]

NARRATIVE: CASE EVENT DATE: 20160513
